FAERS Safety Report 21383207 (Version 2)
Quarter: 2022Q4

REPORT INFORMATION
  Report Type: Spontaneous
  Country: US (occurrence: US)
  Receive Date: 20220927
  Receipt Date: 20221003
  Transmission Date: 20230113
  Serious: No
  Sender: FDA-Public Use
  Company Number: US-SANOFI-01292211

PATIENT
  Sex: Female

DRUGS (4)
  1. XYZAL ALLERGY 24HR [Suspect]
     Active Substance: LEVOCETIRIZINE DIHYDROCHLORIDE
     Indication: Hypersensitivity
     Dosage: UNK
  2. NASACORT [Concomitant]
     Active Substance: TRIAMCINOLONE ACETONIDE
     Indication: Hypersensitivity
     Dosage: UNK UNK, QD (2 SPRAYS FOR EACH NOSTRILS)
  3. CLARITIN [Concomitant]
     Active Substance: LORATADINE
     Indication: Hypersensitivity
     Dosage: UNK
  4. ALLEGRA [Concomitant]
     Active Substance: FEXOFENADINE HYDROCHLORIDE
     Indication: Hypersensitivity
     Dosage: UNK

REACTIONS (6)
  - Hot flush [Unknown]
  - Body temperature decreased [Unknown]
  - Abdominal discomfort [Unknown]
  - Vomiting [Unknown]
  - Dry mouth [Unknown]
  - Feeling cold [Unknown]
